FAERS Safety Report 8829495 (Version 1)
Quarter: 2012Q4

REPORT INFORMATION
  Report Type: 
  Country: US (occurrence: US)
  Receive Date: 20121008
  Receipt Date: 20121008
  Transmission Date: 20130627
  Serious: No
  Sender: FDA-Public Use
  Company Number: US-TEVA-340356USA

PATIENT
  Sex: Female
  Weight: 59.02 kg

DRUGS (7)
  1. QVAR [Suspect]
     Indication: CHRONIC OBSTRUCTIVE PULMONARY DISEASE
     Dosage: 320 mcg daily use
     Dates: start: 20120323
  2. IPRATROPIUM BROMIDE [Concomitant]
  3. ROSUVASTATIN [Concomitant]
  4. DILTIAZEM [Concomitant]
  5. ACETYLSALICYLIC ACID [Concomitant]
  6. SALMETEROL XINAFOATE [Concomitant]
  7. CETIRIZINE HYDROCHLORIDE [Concomitant]

REACTIONS (2)
  - Erythema [Not Recovered/Not Resolved]
  - Erythema [None]
